FAERS Safety Report 9330326 (Version 1)
Quarter: 2013Q2

REPORT INFORMATION
  Report Type: Spontaneous
  Country: IT (occurrence: IT)
  Receive Date: 20130605
  Receipt Date: 20130605
  Transmission Date: 20140414
  Serious: Yes (Hospitalization)
  Sender: FDA-Public Use
  Company Number: IT-ROCHE-1231231

PATIENT
  Age: 90 Year
  Sex: Male

DRUGS (1)
  1. AVASTIN [Suspect]
     Indication: MACULOPATHY
     Route: 031
     Dates: start: 20101007, end: 20111222

REACTIONS (2)
  - Thrombosis [Unknown]
  - Extremity necrosis [Unknown]
